FAERS Safety Report 25956152 (Version 1)
Quarter: 2025Q4

REPORT INFORMATION
  Report Type: Spontaneous
  Country: EU (occurrence: EU)
  Receive Date: 20251024
  Receipt Date: 20251024
  Transmission Date: 20260117
  Serious: Yes (Other)
  Sender: BAYER HEALTHCARE PHARMACEUTICALS INC.
  Company Number: EU-BAYER-2025A137201

PATIENT
  Age: 57 Year
  Sex: Male
  Weight: 103 kg

DRUGS (8)
  1. KERENDIA [Suspect]
     Active Substance: FINERENONE
  2. LERCANIDIPINE [Concomitant]
     Active Substance: LERCANIDIPINE
  3. INDAPAMIDE\PERINDOPRIL [Concomitant]
     Active Substance: INDAPAMIDE\PERINDOPRIL
  4. SITAGLIPTIN [Concomitant]
     Active Substance: SITAGLIPTIN
  5. ATORVASTATIN [Concomitant]
     Active Substance: ATORVASTATIN
     Dosage: 40 MG
  6. ALLOPURINOL [Concomitant]
     Active Substance: ALLOPURINOL
     Dosage: 100 MG
  7. URAPIDIL [Concomitant]
     Active Substance: URAPIDIL
  8. DAPAGLIFLOZIN [Concomitant]
     Active Substance: DAPAGLIFLOZIN

REACTIONS (2)
  - Blood potassium increased [None]
  - Blood pressure systolic increased [None]

NARRATIVE: CASE EVENT DATE: 20250401
